FAERS Safety Report 17520450 (Version 2)
Quarter: 2020Q1

REPORT INFORMATION
  Report Type: Spontaneous
  Country: US (occurrence: US)
  Receive Date: 20200310
  Receipt Date: 20200311
  Transmission Date: 20200409
  Serious: No
  Sender: FDA-Public Use
  Company Number: US-009507513-2003USA002297

PATIENT
  Sex: Female

DRUGS (1)
  1. BELSOMRA [Suspect]
     Active Substance: SUVOREXANT
     Indication: INSOMNIA
     Dosage: 1 TABLET DAILY
     Route: 048

REACTIONS (2)
  - Drug ineffective [Unknown]
  - Weight increased [Unknown]

NARRATIVE: CASE EVENT DATE: 20200303
